FAERS Safety Report 5815474-9 (Version None)
Quarter: 2008Q3

REPORT INFORMATION
  Report Type: 
  Country: None (occurrence: None)
  Receive Date: 20080718
  Receipt Date: 20080715
  Transmission Date: 20090109
  Serious: Yes (Hospitalization, Disabling)
  Sender: FDA-Public Use
  Company Number: GB-MERCK-0806GBR00017

PATIENT
  Age: 61 Year
  Sex: Male
  Weight: 90 kg

DRUGS (6)
  1. DECADRON SRC [Suspect]
     Indication: PROPHYLAXIS OF NAUSEA AND VOMITING
     Route: 048
     Dates: start: 20071219, end: 20080101
  2. CISPLATIN [Suspect]
     Indication: OESOPHAGEAL CARCINOMA
     Route: 042
     Dates: start: 20071219, end: 20071219
  3. CAPECITABINE [Suspect]
     Indication: OESOPHAGEAL CARCINOMA
     Route: 048
     Dates: start: 20071219, end: 20080101
  4. DOMPERIDONE [Concomitant]
     Indication: PROPHYLAXIS OF NAUSEA AND VOMITING
     Route: 048
     Dates: start: 20071219, end: 20080101
  5. EPIRUBICIN HYDROCHLORIDE [Suspect]
     Indication: OESOPHAGEAL CARCINOMA
     Route: 042
     Dates: start: 20071219, end: 20071219
  6. GRANISETRON [Concomitant]
     Indication: PROPHYLAXIS OF NAUSEA AND VOMITING
     Route: 048
     Dates: start: 20071219, end: 20071219

REACTIONS (3)
  - BLOOD GLUCOSE INCREASED [None]
  - HYPERGLYCAEMIC HYPEROSMOLAR NONKETOTIC SYNDROME [None]
  - PERIPHERAL ISCHAEMIA [None]
